FAERS Safety Report 5811381-6 (Version None)
Quarter: 2008Q3

REPORT INFORMATION
  Report Type: 
  Country: None (occurrence: None)
  Receive Date: 20080716
  Receipt Date: 20080708
  Transmission Date: 20090109
  Serious: Yes (Other)
  Sender: FDA-Public Use
  Company Number: ES-AVENTIS-200813512EU

PATIENT
  Age: 44 Year
  Sex: Male

DRUGS (2)
  1. ENOXAPARIN SODIUM [Suspect]
     Route: 058
     Dates: start: 20080429, end: 20080429
  2. IBUPROFEN [Concomitant]
     Route: 048
     Dates: start: 20080428, end: 20080505

REACTIONS (2)
  - PRURITUS [None]
  - RASH MACULO-PAPULAR [None]
